FAERS Safety Report 7797773-7 (Version None)
Quarter: 2011Q4

REPORT INFORMATION
  Report Type: 
  Country: None (occurrence: None)
  Receive Date: 20111005
  Receipt Date: 20110926
  Transmission Date: 20120403
  Serious: Yes (Other)
  Sender: FDA-Public Use
  Company Number: JP-ABBOTT-11P-087-0859740-00

PATIENT
  Age: 64 Year
  Sex: Male
  Weight: 47 kg

DRUGS (5)
  1. ROCURONIUM [Concomitant]
     Indication: INDUCTION OF ANAESTHESIA
  2. PROPOFOL [Concomitant]
     Indication: INDUCTION OF ANAESTHESIA
  3. REMIFENTANIL [Concomitant]
     Indication: INDUCTION AND MAINTENANCE OF ANAESTHESIA
  4. SEVOFLURANE [Suspect]
     Indication: MAINTENANCE OF ANAESTHESIA
     Route: 055
  5. OXYGEN [Concomitant]
     Indication: MAINTENANCE OF ANAESTHESIA

REACTIONS (1)
  - VENTRICULAR FIBRILLATION [None]
